FAERS Safety Report 14370524 (Version 14)
Quarter: 2019Q2

REPORT INFORMATION
  Report Type: Spontaneous
  Country: US (occurrence: US)
  Receive Date: 20180110
  Receipt Date: 20190625
  Transmission Date: 20190711
  Serious: Yes (Hospitalization, Disabling, Other)
  Sender: FDA-Public Use
  Company Number: US-PFIZER INC-2018005899

PATIENT
  Age: 69 Year
  Sex: Female
  Weight: 58.51 kg

DRUGS (7)
  1. MAGNESIUM [Concomitant]
     Active Substance: MAGNESIUM
     Indication: MAGNESIUM DEFICIENCY
     Dosage: UNK
  2. POTASSIUM [Concomitant]
     Active Substance: POTASSIUM
     Indication: BLOOD POTASSIUM DECREASED
     Dosage: 30 MEQ, DAILY
  3. XGEVA [Concomitant]
     Active Substance: DENOSUMAB
     Dosage: UNK
  4. ACYCLOVIR. [Concomitant]
     Active Substance: ACYCLOVIR
     Dosage: UNK, DAILY
  5. ZOMETA [Concomitant]
     Active Substance: ZOLEDRONIC ACID
     Dosage: UNK
  6. GRANIX [Concomitant]
     Active Substance: TBO-FILGRASTIM
     Indication: WHITE BLOOD CELL COUNT DECREASED
     Dosage: UNK
     Dates: start: 2016
  7. IBRANCE [Suspect]
     Active Substance: PALBOCICLIB
     Indication: BREAST CANCER METASTATIC
     Dosage: 75 MG, CYCLIC (ONCE A DAY FOR THREE WEEKS ON, ONE WEEK OFF)
     Route: 048
     Dates: start: 201605, end: 201904

REACTIONS (26)
  - Alopecia [Not Recovered/Not Resolved]
  - Gingival ulceration [Not Recovered/Not Resolved]
  - Hypoaesthesia [Not Recovered/Not Resolved]
  - Malaise [Not Recovered/Not Resolved]
  - Oral pain [Unknown]
  - Mucosal inflammation [Recovered/Resolved]
  - Tongue ulceration [Not Recovered/Not Resolved]
  - Fall [Unknown]
  - Cognitive disorder [Not Recovered/Not Resolved]
  - Candida infection [Recovered/Resolved]
  - Asthenia [Unknown]
  - Breakthrough pain [Unknown]
  - Dysphagia [Recovered/Resolved]
  - Mouth ulceration [Not Recovered/Not Resolved]
  - Tongue disorder [Unknown]
  - Accident at work [Unknown]
  - Dry mouth [Not Recovered/Not Resolved]
  - Intestinal obstruction [Recovered/Resolved]
  - Condition aggravated [Unknown]
  - Neoplasm progression [Recovered/Resolved]
  - Memory impairment [Unknown]
  - Chapped lips [Not Recovered/Not Resolved]
  - Neuropathy peripheral [Not Recovered/Not Resolved]
  - Paraesthesia [Not Recovered/Not Resolved]
  - Weight fluctuation [Unknown]
  - Taste disorder [Unknown]

NARRATIVE: CASE EVENT DATE: 2016
